FAERS Safety Report 11438340 (Version 1)
Quarter: 2015Q3

REPORT INFORMATION
  Report Type: Spontaneous
  Country: US (occurrence: US)
  Receive Date: 20150901
  Receipt Date: 20150901
  Transmission Date: 20151125
  Serious: No
  Sender: FDA-Public Use
  Company Number: US-PAR PHARMACEUTICAL, INC-2015SCPR014006

PATIENT

DRUGS (1)
  1. DELESTROGEN [Suspect]
     Active Substance: ESTRADIOL VALERATE
     Indication: HORMONE THERAPY
     Dosage: UNK UNK, UNKNOWN
     Route: 065

REACTIONS (2)
  - Oestradiol decreased [Unknown]
  - Product quality issue [Unknown]
